FAERS Safety Report 5634752-X (Version None)
Quarter: 2008Q1

REPORT INFORMATION
  Report Type: 
  Country: None (occurrence: None)
  Receive Date: 20080221
  Receipt Date: 20080221
  Transmission Date: 20080703
  Serious: Yes (Hospitalization)
  Sender: FDA-Public Use
  Company Number: None

PATIENT
  Sex: Male
  Weight: 90.9 kg

DRUGS (7)
  1. TARCEVA [Suspect]
     Indication: GLIOBLASTOMA MULTIFORME
     Dosage: 100MG ONCE DAILY MOUTH
     Route: 048
     Dates: start: 20070612
  2. RAPAMUNE [Suspect]
     Indication: GLIOBLASTOMA MULTIFORME
     Dosage: 5MG ONCE DAILY MOUTH
     Route: 048
     Dates: start: 20070612
  3. KEPPRA [Concomitant]
  4. NORVASC [Concomitant]
  5. ATENOLOL [Concomitant]
  6. VALTREX [Concomitant]
  7. PREVACID [Concomitant]

REACTIONS (2)
  - HYPERGLYCAEMIA [None]
  - URINARY TRACT INFECTION [None]
